FAERS Safety Report 8795572 (Version 2)
Quarter: 2015Q2

REPORT INFORMATION
  Report Type: Report from Study
  Country: US (occurrence: US)
  Receive Date: 20120917
  Receipt Date: 20150629
  Transmission Date: 20150821
  Serious: Yes (Death)
  Sender: FDA-Public Use
  Company Number: US-ROCHE-1128372

PATIENT
  Sex: Male

DRUGS (25)
  1. TAXOTERE [Concomitant]
     Active Substance: DOCETAXEL
     Route: 065
  2. PLATINOL [Concomitant]
     Active Substance: CISPLATIN
     Route: 065
  3. NOVANTRONE [Concomitant]
     Active Substance: MITOXANTRONE HYDROCHLORIDE
     Route: 042
  4. VELBAN [Concomitant]
     Active Substance: VINBLASTINE SULFATE
     Route: 042
  5. SKELAXIN (UNITED STATES) [Concomitant]
     Route: 048
  6. TAXOTERE [Concomitant]
     Active Substance: DOCETAXEL
     Route: 065
  7. ESTRAMUSTINE [Concomitant]
     Active Substance: ESTRAMUSTINE
     Route: 065
  8. AVASTIN [Suspect]
     Active Substance: BEVACIZUMAB
     Indication: PROSTATE CANCER
     Dosage: THE PATIENT RECIVED 435 MG
     Route: 042
     Dates: start: 20060530
  9. NEULASTA [Concomitant]
     Active Substance: PEGFILGRASTIM
     Route: 065
  10. BENADRYL [Concomitant]
     Active Substance: DIPHENHYDRAMINE HYDROCHLORIDE
     Route: 042
  11. ZOFRAN [Concomitant]
     Active Substance: ONDANSETRON HYDROCHLORIDE
     Indication: NAUSEA
     Route: 042
  12. CISPLATIN. [Concomitant]
     Active Substance: CISPLATIN
     Route: 065
  13. DECADRON [Concomitant]
     Active Substance: DEXAMETHASONE
     Route: 042
  14. AVASTIN [Suspect]
     Active Substance: BEVACIZUMAB
     Route: 042
     Dates: start: 20060530
  15. ALOXI [Concomitant]
     Active Substance: PALONOSETRON HYDROCHLORIDE
     Route: 042
  16. ABRAXANE [Concomitant]
     Active Substance: PACLITAXEL
     Route: 065
  17. ARANESP [Concomitant]
     Active Substance: DARBEPOETIN ALFA
     Route: 042
  18. DECADRON [Concomitant]
     Active Substance: DEXAMETHASONE
     Route: 042
  19. QUININE [Concomitant]
     Active Substance: QUININE
  20. CYTOXAN [Concomitant]
     Active Substance: CYCLOPHOSPHAMIDE
     Route: 065
  21. DEXTROMETHORPHAN [Concomitant]
     Active Substance: DEXTROMETHORPHAN
     Route: 042
  22. EMCYT [Concomitant]
     Active Substance: ESTRAMUSTINE PHOSPHATE SODIUM
     Route: 048
  23. NOVANTRONE [Concomitant]
     Active Substance: MITOXANTRONE HYDROCHLORIDE
     Route: 042
  24. AMBIEN [Concomitant]
     Active Substance: ZOLPIDEM TARTRATE
     Route: 065
  25. PREDNISONE. [Concomitant]
     Active Substance: PREDNISONE
     Route: 048

REACTIONS (9)
  - Death [Fatal]
  - Muscle spasms [Recovered/Resolved]
  - Groin pain [Unknown]
  - Flank pain [Unknown]
  - Neuropathy peripheral [Unknown]
  - Visual acuity reduced [Unknown]
  - Onychomadesis [Unknown]
  - Muscular weakness [Unknown]
  - Off label use [Unknown]
